FAERS Safety Report 7730335-6 (Version None)
Quarter: 2011Q3

REPORT INFORMATION
  Report Type: 
  Country: None (occurrence: None)
  Receive Date: 20110906
  Receipt Date: 20110823
  Transmission Date: 20111222
  Serious: Yes (Hospitalization, Other)
  Sender: FDA-Public Use
  Company Number: US-ELI_LILLY_AND_COMPANY-US201106007989

PATIENT
  Sex: Female
  Weight: 39.4 kg

DRUGS (6)
  1. CALCIUM CARBONATE [Concomitant]
  2. SYNTHROID [Concomitant]
  3. FORTEO [Suspect]
     Indication: OSTEOPOROSIS POSTMENOPAUSAL
     Dosage: 20 UG, QD
     Route: 058
     Dates: start: 20110621, end: 20110621
  4. METFORMIN HCL [Concomitant]
  5. NAPROXEN (ALEVE) [Concomitant]
  6. PANTOPRAZOLE [Concomitant]

REACTIONS (5)
  - NAUSEA [None]
  - DIZZINESS [None]
  - UPPER GASTROINTESTINAL HAEMORRHAGE [None]
  - HAEMATEMESIS [None]
  - HYPOTENSION [None]
